FAERS Safety Report 25551405 (Version 1)
Quarter: 2025Q3

REPORT INFORMATION
  Report Type: Spontaneous
  Country: TR (occurrence: TR)
  Receive Date: 20250714
  Receipt Date: 20250714
  Transmission Date: 20251021
  Serious: Yes (Other)
  Sender: MYLAN
  Company Number: TR-MYLANLABS-2025M1057857

PATIENT
  Age: 60 Year
  Sex: Female

DRUGS (1)
  1. VENLAFAXINE HYDROCHLORIDE [Suspect]
     Active Substance: VENLAFAXINE HYDROCHLORIDE
     Indication: Product used for unknown indication
     Dosage: 75 MILLIGRAM, QD (ONCE A DAY IN THE MORNING)
     Dates: start: 2007

REACTIONS (6)
  - Nausea [Unknown]
  - Tremor [Unknown]
  - Chills [Unknown]
  - Drug dependence [Unknown]
  - Product dose omission issue [Unknown]
  - Hyperhidrosis [Unknown]
